FAERS Safety Report 7525169-1 (Version None)
Quarter: 2011Q2

REPORT INFORMATION
  Report Type: 
  Country: None (occurrence: None)
  Receive Date: 20110526
  Receipt Date: 20110511
  Transmission Date: 20111010
  Serious: Yes (Hospitalization)
  Sender: FDA-Public Use
  Company Number: CIP11000558

PATIENT
  Age: 63 Year
  Sex: Female

DRUGS (13)
  1. AZITHROMYCIN [Concomitant]
  2. PAROXETINE HCL [Concomitant]
  3. FOSAMAX [Suspect]
     Dosage: 70 MG WEEKLY, ORAL
     Route: 048
     Dates: start: 20001018, end: 20071227
  4. BISOPROLOL FUMARATE W/HYDROCHLOROTHIAZIDE (BISOPROLOL FUMARATE, HYDROC [Concomitant]
  5. ACTONEL [Suspect]
     Dosage: 150 MG ONCE MONTHLY, ORAL
     Route: 048
     Dates: start: 20090911
  6. METFORMIN HCL [Concomitant]
  7. SYNTHROID [Concomitant]
  8. TRAMADOL HCL [Concomitant]
  9. ACTONEL [Suspect]
     Dosage: 35 MG ONCE WEEKLY, ORAL
     Route: 048
     Dates: start: 20071227, end: 20090911
  10. NABUMETONE [Concomitant]
  11. AMITRIPTYLINE HCL [Concomitant]
  12. LORAZEPAM [Concomitant]
  13. CEFUROXIME [Concomitant]

REACTIONS (7)
  - BONE PAIN [None]
  - FALL [None]
  - STRESS FRACTURE [None]
  - PYREXIA [None]
  - FEMUR FRACTURE [None]
  - PATHOLOGICAL FRACTURE [None]
  - FOOT FRACTURE [None]
